FAERS Safety Report 4688277-9 (Version None)
Quarter: 2005Q2

REPORT INFORMATION
  Report Type: 
  Country: None (occurrence: None)
  Receive Date: 20050609
  Receipt Date: 20050531
  Transmission Date: 20051028
  Serious: Yes (Death)
  Sender: FDA-Public Use
  Company Number: 2005082338

PATIENT
  Age: 79 Year
  Sex: Female

DRUGS (1)
  1. ATARAX [Suspect]
     Indication: INSOMNIA
     Dosage: 25 MG

REACTIONS (1)
  - GENERAL PHYSICAL HEALTH DETERIORATION [None]
